FAERS Safety Report 4569024-8 (Version None)
Quarter: 2005Q1

REPORT INFORMATION
  Report Type: 
  Country: None (occurrence: None)
  Receive Date: 20050203
  Receipt Date: 20041116
  Transmission Date: 20050727
  Serious: Yes (Hospitalization)
  Sender: FDA-Public Use
  Company Number: US-BRISTOL-MYERS SQUIBB COMPANY-12767356

PATIENT
  Age: 61 Year
  Sex: Male
  Weight: 86 kg

DRUGS (3)
  1. ERBITUX [Suspect]
     Indication: COLON CANCER METASTATIC
     Route: 042
     Dates: start: 20041112, end: 20041112
  2. BENADRYL [Concomitant]
     Indication: PREMEDICATION
     Route: 042
     Dates: start: 20041112, end: 20041112
  3. PEPCID AC [Concomitant]

REACTIONS (6)
  - BLOOD PRESSURE IMMEASURABLE [None]
  - ERYTHEMA [None]
  - HYPERHIDROSIS [None]
  - PALLOR [None]
  - PULSE ABNORMAL [None]
  - URTICARIA [None]
